FAERS Safety Report 5800677-X (Version None)
Quarter: 2008Q3

REPORT INFORMATION
  Report Type: 
  Country: None (occurrence: None)
  Receive Date: 20080703
  Receipt Date: 20080624
  Transmission Date: 20090109
  Serious: Yes (Death)
  Sender: FDA-Public Use
  Company Number: BR-ROCHE-572534

PATIENT
  Age: 50 Year
  Sex: Male

DRUGS (4)
  1. PEGASYS [Suspect]
     Route: 058
     Dates: start: 20071101, end: 20080621
  2. ROFERON-A [Suspect]
     Route: 065
     Dates: start: 20030101, end: 20030101
  3. RIBAVIRIN [Concomitant]
     Dosage: DRUG:RIBAVIRINE
     Dates: start: 20030101, end: 20030101
  4. RIBAVIRIN [Concomitant]
     Dates: start: 20071101, end: 20080621

REACTIONS (3)
  - MYOSITIS [None]
  - NO THERAPEUTIC RESPONSE [None]
  - RESPIRATORY FAILURE [None]
